FAERS Safety Report 24875293 (Version 1)
Quarter: 2025Q1

REPORT INFORMATION
  Report Type: Report from Study
  Country: US (occurrence: US)
  Receive Date: 20250122
  Receipt Date: 20250122
  Transmission Date: 20250409
  Serious: Yes (Other)
  Sender: ALNYLAM PHARMACEUTICALS
  Company Number: US-ALNYLAM PHARMACEUTICALS, INC.-ALN-2025-000373

PATIENT

DRUGS (1)
  1. AMVUTTRA [Suspect]
     Active Substance: VUTRISIRAN
     Indication: Hereditary neuropathic amyloidosis
     Route: 065
     Dates: start: 20240402, end: 20240402

REACTIONS (5)
  - Brain injury [Unknown]
  - Muscular weakness [Unknown]
  - Therapy interrupted [Unknown]
  - Product distribution issue [Unknown]
  - Pain [Unknown]

NARRATIVE: CASE EVENT DATE: 20250116
